FAERS Safety Report 23688058 (Version 2)
Quarter: 2024Q4

REPORT INFORMATION
  Report Type: Spontaneous
  Country: US (occurrence: US)
  Receive Date: 20240329
  Receipt Date: 20241019
  Transmission Date: 20250115
  Serious: No
  Sender: SANOFI AVENTIS
  Company Number: US-SA-2024SA092669

PATIENT
  Age: 38 Year
  Sex: Male

DRUGS (4)
  1. ALPROLIX [Suspect]
     Active Substance: EFTRENONACOG ALFA
     Indication: Factor IX deficiency
     Dosage: 9830 U (9339-10321), Q10D
     Route: 042
     Dates: start: 201210
  2. ALPROLIX [Suspect]
     Active Substance: EFTRENONACOG ALFA
     Indication: Factor IX deficiency
     Dosage: 9830 U (9339-10321), Q10D
     Route: 042
     Dates: start: 201210
  3. ALPROLIX [Suspect]
     Active Substance: EFTRENONACOG ALFA
     Dosage: 9830 U (9339-10321), PRN (EVERY 24 HOURS AS NEEDED FOR BLEEDING/TRAUMA AS DIRECTED
     Route: 042
     Dates: start: 201210
  4. ALPROLIX [Suspect]
     Active Substance: EFTRENONACOG ALFA
     Dosage: 9830 U (9339-10321), PRN (EVERY 24 HOURS AS NEEDED FOR BLEEDING/TRAUMA AS DIRECTED
     Route: 042
     Dates: start: 201210

REACTIONS (1)
  - Haemorrhage [Unknown]

NARRATIVE: CASE EVENT DATE: 20240316
